FAERS Safety Report 8908225 (Version 1)
Quarter: 2012Q4

REPORT INFORMATION
  Report Type: 
  Country: US (occurrence: US)
  Receive Date: 20121113
  Receipt Date: 20121113
  Transmission Date: 20130627
  Serious: No
  Sender: FDA-Public Use
  Company Number: US-AMGEN-USASP2012059141

PATIENT
  Age: 69 Year
  Sex: Female

DRUGS (9)
  1. ARANESP [Suspect]
     Indication: MYELODYSPLASTIC SYNDROME
     Dosage: 500 UNK, q3wk
     Route: 058
     Dates: start: 20100629
  2. PLAQUENIL                          /00072602/ [Concomitant]
  3. BISACODYL [Concomitant]
  4. CYMBALTA [Concomitant]
  5. DURAGESIC                          /00070401/ [Concomitant]
  6. FLUDROCORTISON ACETATE [Concomitant]
  7. PRILOSEC                           /00661201/ [Concomitant]
  8. VITAMIN D /00107901/ [Concomitant]
  9. ASPIRIN [Concomitant]
     Dosage: 81 UNK, UNK

REACTIONS (1)
  - Blood erythropoietin increased [Unknown]
